FAERS Safety Report 10443344 (Version 43)
Quarter: 2024Q2

REPORT INFORMATION
  Report Type: Other
  Country: CA (occurrence: None)
  Receive Date: 20140910
  Receipt Date: 20240511
  Transmission Date: 20240715
  Serious: Yes (Hospitalization, Other)
  Sender: FDA-Public Use
  Company Number: CA-ROCHE-1113550

PATIENT
  Age: 61 Year
  Sex: Female
  Weight: 100 kg

DRUGS (27)
  1. ACTEMRA [Suspect]
     Active Substance: TOCILIZUMAB
     Indication: Rheumatoid arthritis
     Route: 042
     Dates: start: 20120627
  2. ACTEMRA [Suspect]
     Active Substance: TOCILIZUMAB
     Route: 042
     Dates: start: 20131126
  3. ACTEMRA [Suspect]
     Active Substance: TOCILIZUMAB
     Route: 042
     Dates: start: 20150525
  4. ACTEMRA [Suspect]
     Active Substance: TOCILIZUMAB
     Route: 042
     Dates: start: 20170530
  5. ACTEMRA [Suspect]
     Active Substance: TOCILIZUMAB
     Route: 042
     Dates: start: 20181220
  6. BENADRYL [Suspect]
     Active Substance: DIPHENHYDRAMINE HYDROCHLORIDE
     Indication: Infusion related reaction
     Route: 042
     Dates: start: 20131028, end: 20131028
  7. BENADRYL [Suspect]
     Active Substance: DIPHENHYDRAMINE HYDROCHLORIDE
     Indication: Premedication
     Route: 048
     Dates: start: 20140317
  8. BENADRYL [Suspect]
     Active Substance: DIPHENHYDRAMINE HYDROCHLORIDE
     Route: 048
     Dates: start: 20140122
  9. INFLUENZA VIRUS VACCINE [Suspect]
     Active Substance: INFLUENZA VIRUS VACCINE
     Indication: Product used for unknown indication
     Route: 065
  10. BISOPROLOL FUMARATE [Concomitant]
     Active Substance: BISOPROLOL FUMARATE
  11. LANSOPRAZOLE [Concomitant]
     Active Substance: LANSOPRAZOLE
  12. LISINOPRIL [Concomitant]
     Active Substance: LISINOPRIL
  13. LIPITOR [Concomitant]
     Active Substance: ATORVASTATIN CALCIUM
  14. ASPIRIN [Concomitant]
     Active Substance: ASPIRIN
  15. FOLIC ACID [Concomitant]
     Active Substance: FOLIC ACID
  16. GLYCONON [Concomitant]
  17. HYDROMORPHONE [Concomitant]
     Active Substance: HYDROMORPHONE
  18. CEPHALEX [Concomitant]
  19. BISOPROLOL [Concomitant]
     Active Substance: BISOPROLOL\BISOPROLOL FUMARATE
  20. GABAPENTIN [Concomitant]
     Active Substance: GABAPENTIN
  21. LANSOPRAZOLE [Concomitant]
     Active Substance: LANSOPRAZOLE
  22. LISINOPRIL [Concomitant]
     Active Substance: LISINOPRIL
  23. METFORMIN [Concomitant]
     Active Substance: METFORMIN HYDROCHLORIDE
  24. METHOTREXATE [Concomitant]
     Active Substance: METHOTREXATE
  25. PIOGLITAZONE [Concomitant]
     Active Substance: PIOGLITAZONE
  26. SPIRONOLACTONE [Concomitant]
     Active Substance: SPIRONOLACTONE
  27. ROSUVASTATIN [Concomitant]
     Active Substance: ROSUVASTATIN

REACTIONS (73)
  - Abdominal hernia [Not Recovered/Not Resolved]
  - Diverticulitis [Recovered/Resolved]
  - Osteoarthritis [Not Recovered/Not Resolved]
  - Ophthalmic migraine [Not Recovered/Not Resolved]
  - Kidney infection [Unknown]
  - Hernia [Not Recovered/Not Resolved]
  - Haemorrhage [Unknown]
  - Haemorrhagic cyst [Unknown]
  - Haematoma [Recovered/Resolved]
  - Weight decreased [Unknown]
  - Pain in extremity [Not Recovered/Not Resolved]
  - Hypoaesthesia [Not Recovered/Not Resolved]
  - Pulmonary fibrosis [Recovered/Resolved]
  - Back disorder [Unknown]
  - Wound drainage [Recovering/Resolving]
  - Concussion [Not Recovered/Not Resolved]
  - Arthritis infective [Recovering/Resolving]
  - Nasal ulcer [Recovered/Resolved]
  - Nasal oedema [Recovered/Resolved]
  - Erythema [Recovered/Resolved]
  - Pharyngeal disorder [Recovered/Resolved]
  - Rheumatoid arthritis [Unknown]
  - Bursitis [Not Recovered/Not Resolved]
  - Feeling hot [Recovered/Resolved]
  - Muscle tightness [Recovered/Resolved]
  - Catheter site bruise [Unknown]
  - Arthralgia [Not Recovered/Not Resolved]
  - Cartilage injury [Not Recovered/Not Resolved]
  - Fungal infection [Recovered/Resolved]
  - Arthralgia [Not Recovered/Not Resolved]
  - Cystitis [Not Recovered/Not Resolved]
  - Infusion related reaction [Recovered/Resolved]
  - Fatigue [Recovered/Resolved]
  - Dry skin [Unknown]
  - Infusion related reaction [Unknown]
  - Headache [Unknown]
  - Pyrexia [Recovered/Resolved]
  - Incision site discharge [Not Recovered/Not Resolved]
  - Tooth disorder [Unknown]
  - Hypotension [Unknown]
  - Abdominal pain upper [Recovered/Resolved]
  - Weight increased [Not Recovered/Not Resolved]
  - Nasopharyngitis [Recovering/Resolving]
  - Vomiting [Unknown]
  - Gastrointestinal disorder [Unknown]
  - Gastritis [Unknown]
  - Hepatic enzyme increased [Recovering/Resolving]
  - Body temperature decreased [Unknown]
  - Nausea [Unknown]
  - Pain [Unknown]
  - Infusion related reaction [Unknown]
  - Oropharyngeal pain [Not Recovered/Not Resolved]
  - Hypersensitivity [Unknown]
  - Cough [Not Recovered/Not Resolved]
  - Wound [Unknown]
  - Impaired healing [Unknown]
  - Musculoskeletal disorder [Unknown]
  - Oxygen saturation decreased [Unknown]
  - Weight increased [Recovered/Resolved]
  - Urticaria [Recovered/Resolved]
  - Throat irritation [Recovered/Resolved]
  - Fall [Unknown]
  - Head injury [Unknown]
  - Bone contusion [Unknown]
  - Contusion [Unknown]
  - Off label use [Unknown]
  - Intentional product use issue [Unknown]
  - Peripheral swelling [Unknown]
  - Condition aggravated [Not Recovered/Not Resolved]
  - Blood pressure increased [Unknown]
  - Blood pressure systolic increased [Unknown]
  - Abdominal discomfort [Unknown]
  - Blood pressure systolic abnormal [Unknown]

NARRATIVE: CASE EVENT DATE: 20120629
